FAERS Safety Report 5188098-7 (Version None)
Quarter: 2006Q4

REPORT INFORMATION
  Report Type: 
  Country: None (occurrence: None)
  Receive Date: 20061221
  Receipt Date: 20040409
  Transmission Date: 20070319
  Serious: Yes (Hospitalization)
  Sender: FDA-Public Use
  Company Number: US-ELI_LILLY_AND_COMPANY-US_0404102176

PATIENT
  Age: 66 Year
  Sex: Female
  Weight: 46.818 kg

DRUGS (2)
  1. GEMCITABINE HCL [Suspect]
     Indication: BREAST CANCER
     Dosage: 1000 MG/M2, OTHER
     Route: 042
     Dates: start: 20040116, end: 20040326
  2. *DOCETAXEL [Suspect]
     Indication: BREAST CANCER
     Dosage: 75 MG/M2, OTHER
     Route: 042
     Dates: start: 20040116, end: 20040319

REACTIONS (2)
  - ASCITES [None]
  - CLOSTRIDIUM DIFFICILE COLITIS [None]
